FAERS Safety Report 6440487-6 (Version None)
Quarter: 2009Q4

REPORT INFORMATION
  Report Type: 
  Country: None (occurrence: None)
  Receive Date: 20091113
  Receipt Date: 20091105
  Transmission Date: 20100525
  Serious: Yes (Other)
  Sender: FDA-Public Use
  Company Number: BR-ASTRAZENECA-2009SE25010

PATIENT
  Age: 31 Year
  Sex: Female

DRUGS (1)
  1. XYLOCAINE OINTMENT [Suspect]
     Indication: FURUNCLE
     Route: 048
     Dates: start: 20091021

REACTIONS (3)
  - APPLICATION SITE PAIN [None]
  - HYPOAESTHESIA [None]
  - OFF LABEL USE [None]
